APPROVED DRUG PRODUCT: CEPHALEXIN
Active Ingredient: CEPHALEXIN
Strength: EQ 750MG BASE
Dosage Form/Route: CAPSULE;ORAL
Application: A065253 | Product #003 | TE Code: AB
Applicant: AUROBINDO PHARMA LTD
Approved: Dec 6, 2023 | RLD: No | RS: No | Type: RX